FAERS Safety Report 17049231 (Version 1)
Quarter: 2019Q4

REPORT INFORMATION
  Report Type: Spontaneous
  Country: US (occurrence: US)
  Receive Date: 20191021
  Receipt Date: 20191021
  Transmission Date: 20200122
  Serious: No
  Sender: FDA-Public Use
  Company Number: None

PATIENT
  Age: 83 Year
  Sex: Female

DRUGS (1)
  1. VOTRIENT [Suspect]
     Active Substance: PAZOPANIB HYDROCHLORIDE
     Route: 048
     Dates: start: 20190824, end: 20191016

REACTIONS (5)
  - Headache [None]
  - Asthenia [None]
  - Abdominal pain upper [None]
  - Gastrooesophageal reflux disease [None]
  - Diarrhoea [None]

NARRATIVE: CASE EVENT DATE: 20191021
